FAERS Safety Report 16207028 (Version 1)
Quarter: 2019Q2

REPORT INFORMATION
  Report Type: Spontaneous
  Country: US (occurrence: US)
  Receive Date: 20190313
  Receipt Date: 20190313
  Transmission Date: 20190711
  Serious: No
  Sender: FDA-Public Use
  Company Number: None

PATIENT
  Age: 57 Year
  Sex: Female

DRUGS (1)
  1. REPATHA [Suspect]
     Active Substance: EVOLOCUMAB
     Indication: HYPERLIPIDAEMIA
     Dosage: ?          OTHER
     Route: 058
     Dates: start: 201806, end: 201810

REACTIONS (3)
  - Upper respiratory tract infection [None]
  - Myalgia [None]
  - Influenza like illness [None]

NARRATIVE: CASE EVENT DATE: 20180706
